FAERS Safety Report 7525077-6 (Version None)
Quarter: 2011Q2

REPORT INFORMATION
  Report Type: 
  Country: None (occurrence: None)
  Receive Date: 20110602
  Receipt Date: 20110602
  Transmission Date: 20111010
  Serious: Yes (Hospitalization)
  Sender: FDA-Public Use
  Company Number: None

PATIENT
  Age: 58 Year
  Sex: Male
  Weight: 107 kg

DRUGS (2)
  1. AMOXICILLIN AND CLAVULANATE POTASSIUM [Suspect]
     Indication: CELLULITIS
     Dosage: 875 MG BID PO
     Route: 048
     Dates: start: 20110425, end: 20110501
  2. PIPERACILLIN AND TAZOBACTAM [Suspect]
     Indication: CELLULITIS
     Dosage: 2.25 GM QID IV
     Route: 042
     Dates: start: 20110419, end: 20110425

REACTIONS (7)
  - SKIN ULCER [None]
  - SPLINTER HAEMORRHAGES [None]
  - PURPURA [None]
  - RASH [None]
  - BLOOD UREA NITROGEN/CREATININE RATIO INCREASED [None]
  - PETECHIAE [None]
  - BLOOD CREATININE INCREASED [None]
